FAERS Safety Report 7293782-5 (Version None)
Quarter: 2011Q1

REPORT INFORMATION
  Report Type: 
  Country: None (occurrence: None)
  Receive Date: 20110202
  Receipt Date: 20110120
  Transmission Date: 20110831
  Serious: Yes (Other)
  Sender: FDA-Public Use
  Company Number: JPI-P-013561

PATIENT
  Age: 50 Year
  Sex: Female
  Weight: 68.9467 kg

DRUGS (3)
  1. XYREM [Suspect]
     Indication: CATAPLEXY
     Dosage: 4.5 GM (2.25 GM,1 ON 1 D), ORAL
     Route: 048
     Dates: start: 20060626
  2. PREDNISONE [Suspect]
     Indication: ALVEOLITIS ALLERGIC
     Dosage: 50 MG (50 MG,1 IN 1 D), ORAL; 35 MG (35 MG,1 IN 1 D), ORAL; 9 GM (4.5 GM,2 IN 1 D), ORAL
     Route: 048
     Dates: start: 20061204
  3. PREDNISONE [Suspect]
     Indication: ALVEOLITIS ALLERGIC
     Dosage: 50 MG (50 MG,1 IN 1 D), ORAL; 35 MG (35 MG,1 IN 1 D), ORAL; 9 GM (4.5 GM,2 IN 1 D), ORAL
     Route: 048
     Dates: start: 20060201

REACTIONS (1)
  - CARTILAGE INJURY [None]
